FAERS Safety Report 5914565-1 (Version None)
Quarter: 2008Q4

REPORT INFORMATION
  Report Type: 
  Country: None (occurrence: None)
  Receive Date: 20081010
  Receipt Date: 20081003
  Transmission Date: 20090506
  Serious: Yes (Death, Hospitalization)
  Sender: FDA-Public Use
  Company Number: US-RANBAXY-2008RR-18454

PATIENT
  Age: 23 Year
  Sex: Female

DRUGS (1)
  1. ACETAMINOPHEN [Suspect]
     Indication: OVERDOSE
     Dosage: 50 G, UNK
     Route: 048

REACTIONS (6)
  - CARDIAC FAILURE [None]
  - HAEMORRHAGE [None]
  - HAEMORRHAGIC INFARCTION [None]
  - HEPATIC FAILURE [None]
  - MYOCARDIAL ISCHAEMIA [None]
  - OVERDOSE [None]
